FAERS Safety Report 5399588-6 (Version None)
Quarter: 2007Q3

REPORT INFORMATION
  Report Type: 
  Country: None (occurrence: None)
  Receive Date: 20070727
  Receipt Date: 20070727
  Transmission Date: 20080115
  Serious: Yes (Hospitalization)
  Sender: FDA-Public Use
  Company Number: AU-BOEHRINGER INGELHEIM PHARMACEUTICALS, INC.-2007-BP-07504AU

PATIENT
  Sex: Female

DRUGS (7)
  1. MICARDIS HCT [Suspect]
     Indication: HYPERTENSION
     Dosage: 80/12.5 MG/MG
     Route: 048
     Dates: start: 20060110, end: 20060114
  2. CALTRATE (CALCIUM CARBONATE) [Concomitant]
     Route: 048
  3. IMURAN [Concomitant]
     Route: 048
  4. NEXIUM [Concomitant]
  5. PLAQUENIL (HYDROXYCHLOROQUINE SULPHATE) [Concomitant]
     Route: 048
  6. PREDNISOLONE [Concomitant]
     Route: 048
  7. INDERAL [Concomitant]
     Route: 048

REACTIONS (15)
  - ASTHENIA [None]
  - BACK PAIN [None]
  - BLOOD POTASSIUM DECREASED [None]
  - COGNITIVE DISORDER [None]
  - DISTURBANCE IN ATTENTION [None]
  - FATIGUE [None]
  - HEADACHE [None]
  - HYPERHIDROSIS [None]
  - NAUSEA [None]
  - POLLAKIURIA [None]
  - RASH [None]
  - SENSORY DISTURBANCE [None]
  - SPEECH DISORDER [None]
  - SYSTEMIC LUPUS ERYTHEMATOSUS [None]
  - WEIGHT DECREASED [None]
